FAERS Safety Report 8513004 (Version 2)
Quarter: 2012Q4

REPORT INFORMATION
  Report Type: 
  Country: US (occurrence: US)
  Receive Date: 20120413
  Receipt Date: 20120912
  Transmission Date: 20130627
  Serious: Yes (Hospitalization)
  Sender: FDA-Public Use
  Company Number: US-ELI_LILLY_AND_COMPANY-US201112005048

PATIENT
  Age: 74 None
  Sex: Female
  Weight: 51.25 kg

DRUGS (12)
  1. FORTEO [Suspect]
     Dosage: 20 ug, qd
     Route: 058
     Dates: end: 201201
  2. FORTEO [Suspect]
     Dosage: 20 ug, qd
     Route: 058
  3. FORTEO [Suspect]
     Dosage: 20 ug, 2/W
     Route: 058
     Dates: end: 201203
  4. OXYGEN [Concomitant]
  5. ALBUTEROL [Concomitant]
     Dosage: UNK
  6. FUROSEMIDE [Concomitant]
     Dosage: UNK
  7. IPRATROPIUM [Concomitant]
     Dosage: UNK
  8. PANTOPRAZOLE [Concomitant]
     Dosage: UNK
  9. PREDNISONE [Concomitant]
     Dosage: UNK
  10. VERAPAMIL [Concomitant]
     Dosage: UNK
  11. FLUTICASONE [Concomitant]
     Dosage: UNK
  12. FORTEO [Suspect]
     Indication: OSTEOPOROSIS
     Dosage: 20 ug, qd
     Route: 058
     Dates: start: 201111, end: 201112

REACTIONS (9)
  - Asthma [Unknown]
  - Pain in extremity [Recovered/Resolved]
  - Arthralgia [Unknown]
  - Pain [Recovered/Resolved]
  - Dyspnoea [Unknown]
  - Intentional drug misuse [Recovered/Resolved]
  - Inappropriate schedule of drug administration [Unknown]
  - Laceration [Unknown]
  - Injection site haemorrhage [Unknown]
